FAERS Safety Report 24785218 (Version 1)
Quarter: 2024Q4

REPORT INFORMATION
  Report Type: Spontaneous
  Country: US (occurrence: None)
  Receive Date: 20241227
  Receipt Date: 20241227
  Transmission Date: 20250115
  Serious: Yes (Hospitalization)
  Sender: Public
  Company Number: None

PATIENT
  Age: 84 Year
  Sex: Female

DRUGS (1)
  1. OTEZLA [Suspect]
     Active Substance: APREMILAST
     Indication: Psoriatic arthropathy
     Dosage: FREQUENCY : TWICE A DAY;?

REACTIONS (10)
  - Staring [None]
  - Unresponsive to stimuli [None]
  - Therapy interrupted [None]
  - Mutism [None]
  - Fall [None]
  - Abnormal behaviour [None]
  - Somnolence [None]
  - Skin laceration [None]
  - Urinary tract infection [None]
  - Transient ischaemic attack [None]
